FAERS Safety Report 10174238 (Version 1)
Quarter: 2014Q2

REPORT INFORMATION
  Report Type: Spontaneous
  Country: US (occurrence: US)
  Receive Date: 20140515
  Receipt Date: 20140515
  Transmission Date: 20141212
  Serious: Yes (Death)
  Sender: FDA-Public Use
  Company Number: US-ACTAVIS-2014-09685

PATIENT
  Sex: Female

DRUGS (2)
  1. FENTANYL-50 (WATSON LABORATORIES) [Suspect]
     Indication: SCIATICA
     Dosage: 1 PATCH EVERY 48 TO 72 HOURS
     Route: 062
  2. FENTANYL-50 (WATSON LABORATORIES) [Suspect]
     Indication: OFF LABEL USE

REACTIONS (3)
  - Death [Fatal]
  - Off label use [Fatal]
  - Wrong technique in drug usage process [Fatal]
